FAERS Safety Report 18687752 (Version 2)
Quarter: 2021Q1

REPORT INFORMATION
  Report Type: Spontaneous
  Country: HR (occurrence: HR)
  Receive Date: 20201231
  Receipt Date: 20210113
  Transmission Date: 20210419
  Serious: Yes (Hospitalization)
  Sender: FDA-Public Use
  Company Number: HR-PFIZER INC-2020491967

PATIENT
  Sex: Male

DRUGS (6)
  1. PRYLAR [Suspect]
     Active Substance: AMLODIPINE\RAMIPRIL
     Dosage: 10/5 MG 1X1 IN THE MORNING
  2. SORTIS [Suspect]
     Active Substance: ATORVASTATIN
     Dosage: 40 MG
  3. ELIQUIS [Suspect]
     Active Substance: APIXABAN
     Indication: CEREBROVASCULAR ACCIDENT PROPHYLAXIS
     Dosage: 5 MILLIGRAM, BID
     Route: 065
  4. GARDIN [FAMOTIDINE] [Suspect]
     Active Substance: FAMOTIDINE
     Dosage: 75 MG 1X1 (MINIMUM ONE YEAR)
  5. ACETYLSALICYLIC ACID [Suspect]
     Active Substance: ASPIRIN
     Dosage: 100 MG FOR THE NEXT MONTH (THEN OMIT)
  6. CONCOR [Suspect]
     Active Substance: BISOPROLOL FUMARATE
     Dosage: 5 MG 1X1 IN THE MORNING

REACTIONS (2)
  - Lung disorder [Unknown]
  - Cardiac disorder [Unknown]
